FAERS Safety Report 12547633 (Version 2)
Quarter: 2016Q3

REPORT INFORMATION
  Report Type: Report from Study
  Country: FR (occurrence: FR)
  Receive Date: 20160712
  Receipt Date: 20160714
  Transmission Date: 20161109
  Serious: Yes (Hospitalization, Other)
  Sender: FDA-Public Use
  Company Number: FR-BRISTOL-MYERS SQUIBB COMPANY-BMS-2016-056287

PATIENT
  Age: 71 Year
  Sex: Female
  Weight: 59 kg

DRUGS (5)
  1. ENTECAVIR. [Suspect]
     Active Substance: ENTECAVIR
     Indication: HEPATITIS
     Dosage: 0.5 MG, QD
     Route: 065
     Dates: start: 2008
  2. ESOMEPRAZOLE                       /01479302/ [Concomitant]
     Active Substance: ESOMEPRAZOLE
     Indication: GASTROOESOPHAGEAL REFLUX DISEASE
     Dosage: 40 MG, QD
     Route: 065
     Dates: start: 2006
  3. AERIUS [Concomitant]
     Active Substance: DESLORATADINE
     Indication: SEASONAL ALLERGY
     Dosage: 5 MG, QD
     Route: 065
     Dates: start: 2009, end: 20160606
  4. NATECAL [Concomitant]
     Active Substance: CALCIUM CARBONATE\CHOLECALCIFEROL
     Indication: HYPOVITAMINOSIS
     Dosage: UNK IU, QD
     Route: 065
  5. CIPRALAN [Concomitant]
     Active Substance: CIFENLINE SUCCINATE
     Indication: VENTRICULAR TACHYCARDIA
     Dosage: 130 MG, TID
     Route: 065

REACTIONS (8)
  - General physical health deterioration [Recovering/Resolving]
  - Portal vein thrombosis [Unknown]
  - Atrial fibrillation [Unknown]
  - Hepatocellular carcinoma [Unknown]
  - Oedema peripheral [Unknown]
  - Lung infection [Unknown]
  - Inflammation [Unknown]
  - Therapeutic embolisation [Unknown]

NARRATIVE: CASE EVENT DATE: 20160115
